FAERS Safety Report 9197638 (Version 1)
Quarter: 2013Q1

REPORT INFORMATION
  Report Type: Spontaneous
  Country: US (occurrence: None)
  Receive Date: 20120709
  Receipt Date: 20120709
  Transmission Date: 20140127
  Serious: Yes (Hospitalization)
  Sender: FDA-Public Use
  Company Number: PHHY2011US48246

PATIENT
  Age: 76 Year
  Sex: Male
  Weight: 114.3 kg

DRUGS (15)
  1. GLEEVEC [Suspect]
     Route: 048
  2. XANAX (ALPRAZOLAM) [Concomitant]
  3. LASIX (FUROSEMIDE) [Concomitant]
  4. FLUTICASONE (FLUTICASONE) [Concomitant]
  5. RYTHMOL (PROPAFENOME) [Concomitant]
  6. TRICOR (FENOFIBRATE) [Concomitant]
  7. LANTUS (INSULIN GLARGINE) [Concomitant]
  8. TRAZODONE (TRAZODONE) [Concomitant]
  9. ATENOLOL (ATENOLOL) [Concomitant]
  10. LEVOTHYROXINE (LEVOTHYROXINE) [Concomitant]
  11. NEXIUM (ESOMEPRAZOLE MAGNESIUM) [Concomitant]
  12. POTASSIUM (POTASSIUM) [Concomitant]
  13. VITAMIN B12 (CYANOCOBALAMIN) [Concomitant]
  14. HYDROCODONE W/HOMATROPINE (HOMATROPINE, HYDROCODONE) [Concomitant]
  15. ASPIRIN (ACETYLSALICYLIC ACID) [Concomitant]

REACTIONS (4)
  - Anaemia [None]
  - Fatigue [None]
  - Dyspnoea [None]
  - Chromaturia [None]
